FAERS Safety Report 8303847 (Version 2)
Quarter: 2013Q1

REPORT INFORMATION
  Report Type: Spontaneous
  Country: GB (occurrence: GB)
  Receive Date: 20111221
  Receipt Date: 20130219
  Transmission Date: 20140127
  Serious: Yes (Death, Hospitalization)
  Sender: FDA-Public Use
  Company Number: GB-RANBAXY-2011US-51154

PATIENT
  Age: 43 Year
  Sex: Female

DRUGS (1)
  1. PARACETAMOL [Suspect]
     Indication: PRODUCT USED FOR UNKNOWN INDICATION
     Dosage: UNK
     Route: 048

REACTIONS (10)
  - Toxicity to various agents [Unknown]
  - Metabolic acidosis [Recovered/Resolved]
  - Cerebral infarction [Fatal]
  - Cerebral haematoma [Fatal]
  - Coma [Unknown]
  - Hypotension [Unknown]
  - Aspartate aminotransferase increased [Recovered/Resolved]
  - Convulsion [Unknown]
  - Myoclonus [Unknown]
  - Nystagmus [Unknown]
